FAERS Safety Report 6348052-6 (Version None)
Quarter: 2009Q3

REPORT INFORMATION
  Report Type: 
  Country: None (occurrence: None)
  Receive Date: 20090910
  Receipt Date: 20090828
  Transmission Date: 20100115
  Serious: Yes (Hospitalization)
  Sender: FDA-Public Use
  Company Number: US-WATSON-2009-07095

PATIENT
  Sex: Female
  Weight: 44.1 kg

DRUGS (1)
  1. FERRLECIT [Suspect]
     Indication: BLOOD IRON DECREASED
     Dosage: 125 MG WITH ~75CC NORMAL SALINE, SINGLE
     Route: 042
     Dates: start: 20090306, end: 20090306

REACTIONS (10)
  - ABDOMINAL PAIN [None]
  - ANGIOEDEMA [None]
  - BACK PAIN [None]
  - DRUG HYPERSENSITIVITY [None]
  - HYPERTENSION [None]
  - HYPOAESTHESIA ORAL [None]
  - LIP SWELLING [None]
  - NAUSEA [None]
  - TACHYCARDIA [None]
  - VOMITING [None]
